FAERS Safety Report 5596996-5 (Version None)
Quarter: 2008Q1

REPORT INFORMATION
  Report Type: 
  Country: None (occurrence: None)
  Receive Date: 20080121
  Receipt Date: 20080110
  Transmission Date: 20080703
  Serious: Yes (Hospitalization, Other)
  Sender: FDA-Public Use
  Company Number: CZ-ELI_LILLY_AND_COMPANY-CZ200710003163

PATIENT
  Sex: Female

DRUGS (3)
  1. ZYPREXA [Suspect]
     Indication: INSOMNIA
     Dosage: 5 MG, DAILY (1/D)
     Route: 048
     Dates: start: 20070926
  2. EPIRUBICIN [Concomitant]
     Indication: BREAST CANCER
     Dosage: 150 MG, UNK
     Route: 042
     Dates: start: 20071217
  3. CYCLOPHOSPHAMIDE [Concomitant]
     Indication: BREAST CANCER
     Dosage: 1000 MG, UNK
     Route: 042
     Dates: start: 20071217

REACTIONS (2)
  - BREAST CANCER [None]
  - DRUG EXPOSURE DURING PREGNANCY [None]
